FAERS Safety Report 9304348 (Version 2)
Quarter: 2013Q2

REPORT INFORMATION
  Report Type: Spontaneous
  Country: TR (occurrence: TR)
  Receive Date: 20130522
  Receipt Date: 20130530
  Transmission Date: 20140414
  Serious: Yes (Other)
  Sender: FDA-Public Use
  Company Number: TR-VERTEX PHARMACEUTICALS INC-2013-006313

PATIENT
  Sex: 0

DRUGS (4)
  1. INCIVO [Suspect]
     Indication: HEPATITIS C
     Route: 048
  2. RIBAVIRIN [Suspect]
     Indication: HEPATITIS C
     Dosage: DOSAGE FORM: UNKNOWN
     Route: 065
  3. RIBAVIRIN [Suspect]
     Dosage: DOSAGE FORM: UNKNOWN
     Route: 065
  4. PEGINTERFERON ALFA [Suspect]
     Indication: HEPATITIS C
     Dosage: DOSAGE FORM: UNKNOWN
     Route: 065

REACTIONS (14)
  - Vaginal haemorrhage [Unknown]
  - Blood creatinine increased [Unknown]
  - Anaemia [Unknown]
  - Haematuria [Unknown]
  - Decreased appetite [Unknown]
  - Parosmia [Unknown]
  - Epistaxis [Unknown]
  - Asthenia [Unknown]
  - Pruritus [Unknown]
  - Anal pruritus [Unknown]
  - Rash [Unknown]
  - Dysgeusia [Unknown]
  - Nausea [Unknown]
  - Haemorrhoids [Unknown]
